FAERS Safety Report 8514964-8 (Version None)
Quarter: 2012Q3

REPORT INFORMATION
  Report Type: 
  Country: None (occurrence: None)
  Receive Date: 20120711
  Receipt Date: 20120711
  Transmission Date: 20120928
  Serious: Yes (Other)
  Sender: FDA-Public Use
  Company Number: None

PATIENT
  Sex: Male
  Weight: 56.2 kg

DRUGS (12)
  1. ETHAMBUTOL 800 MG DAILY [Concomitant]
  2. MOXIFLOXACIN HCL [Concomitant]
  3. PYRAZINAMIDE 1000 MG DAILY [Concomitant]
  4. RIFABUTIN 300 MG DAILY [Concomitant]
  5. NITROFURAUTOIN 100 MG TWICE DAILY [Concomitant]
  6. RIFAMPIN [Suspect]
     Indication: PULMONARY TUBERCULOSIS
     Dosage: 600 MG DAILY PO
     Route: 048
     Dates: start: 20120313, end: 20120424
  7. RIFAMPIN [Suspect]
     Indication: PULMONARY TUBERCULOSIS
     Dosage: 600 MG DAILY PO
     Route: 048
     Dates: start: 20120510, end: 20120515
  8. RIFAMPIN [Suspect]
     Indication: PULMONARY TUBERCULOSIS
     Dosage: 600 MG DAILY PO
     Route: 048
     Dates: start: 20111117, end: 20120223
  9. ISONIAZID [Suspect]
     Indication: PULMONARY TUBERCULOSIS
     Dosage: 300 MG DAILY PO
     Route: 048
     Dates: start: 20111117, end: 20120509
  10. ETHAMBUTOL 1200 MG DAILY [Concomitant]
  11. NITROFURAUTOIN 100 MG TWICE DAILY [Concomitant]
  12. LEVOFLOXACIN 750 MG DAILY [Concomitant]

REACTIONS (2)
  - THROMBOCYTOPENIA [None]
  - NEUTROPENIA [None]
